FAERS Safety Report 7366736-8 (Version None)
Quarter: 2011Q1

REPORT INFORMATION
  Report Type: 
  Country: None (occurrence: None)
  Receive Date: 20110322
  Receipt Date: 20110316
  Transmission Date: 20110831
  Serious: Yes (Hospitalization)
  Sender: FDA-Public Use
  Company Number: DE-ROCHE-741788

PATIENT
  Sex: Female

DRUGS (10)
  1. RIBAVIRIN [Suspect]
     Indication: HEPATITIS C
     Route: 065
  2. LIMPTAR [Concomitant]
  3. LEVOPAR [Concomitant]
  4. SIMVASTATIN [Concomitant]
  5. RENAGEL [Concomitant]
  6. CRANBERRY [Concomitant]
  7. PEGASYS [Suspect]
     Indication: HEPATITIS C
     Route: 058
     Dates: start: 20100308, end: 20100801
  8. PRAMIPEXOLE DIHYDROCHLORIDE [Suspect]
     Indication: RESTLESS LEGS SYNDROME
     Route: 065
     Dates: start: 20100801, end: 20100801
  9. CC-NEFRO [Concomitant]
  10. TAVEGIL [Concomitant]

REACTIONS (1)
  - OSMOTIC DEMYELINATION SYNDROME [None]
